FAERS Safety Report 21189722 (Version 2)
Quarter: 2022Q3

REPORT INFORMATION
  Report Type: Spontaneous
  Country: US (occurrence: US)
  Receive Date: 20220809
  Receipt Date: 20220816
  Transmission Date: 20221026
  Serious: Yes (Hospitalization, Other)
  Sender: FDA-Public Use
  Company Number: US-TORRENT-00011958

PATIENT
  Age: 42 Year
  Sex: Female

DRUGS (3)
  1. DULOXETINE [Interacting]
     Active Substance: DULOXETINE
     Indication: Product used for unknown indication
     Dosage: 60 MG BID
     Route: 065
  2. METOCLOPRAMIDE [Interacting]
     Active Substance: METOCLOPRAMIDE
     Indication: Product used for unknown indication
     Dosage: 10 MG QID PRN
     Route: 065
  3. NORTRIPTYLINE [Interacting]
     Active Substance: NORTRIPTYLINE
     Indication: Product used for unknown indication
     Dosage: 150 MG QHS (EVERY NIGHT AT BEDTIME)
     Route: 065

REACTIONS (7)
  - Serotonin syndrome [Recovered/Resolved]
  - Drug interaction [Unknown]
  - Acute kidney injury [Unknown]
  - Drug interaction [Unknown]
  - Drug interaction [Unknown]
  - Dystonia [Recovered/Resolved]
  - Oculogyric crisis [Recovered/Resolved]
